FAERS Safety Report 10628327 (Version 1)
Quarter: 2014Q4

REPORT INFORMATION
  Report Type: Spontaneous
  Country: US (occurrence: US)
  Receive Date: 20141205
  Receipt Date: 20141205
  Transmission Date: 20150529
  Serious: Yes (Hospitalization)
  Sender: FDA-Public Use
  Company Number: US-BRISTOL-MYERS SQUIBB COMPANY-20139457

PATIENT
  Age: 58 Year
  Sex: Female
  Weight: 56.14 kg

DRUGS (3)
  1. HYDROCORTISONE. [Concomitant]
     Active Substance: HYDROCORTISONE
  2. GABAPENTIN. [Concomitant]
     Active Substance: GABAPENTIN
  3. LYSODREN [Suspect]
     Active Substance: MITOTANE
     Indication: ADRENAL GLAND CANCER
     Dates: start: 201304

REACTIONS (6)
  - Arthritis [Unknown]
  - Metastases to spine [Unknown]
  - Decreased appetite [Unknown]
  - Weight decreased [Unknown]
  - Product taste abnormal [Unknown]
  - Asthenia [Unknown]

NARRATIVE: CASE EVENT DATE: 2013
